FAERS Safety Report 8009664-7 (Version None)
Quarter: 2011Q4

REPORT INFORMATION
  Report Type: 
  Country: None (occurrence: None)
  Receive Date: 20111228
  Receipt Date: 20111212
  Transmission Date: 20120403
  Serious: No
  Sender: FDA-Public Use
  Company Number: US-BIOGENIDEC-2011BI017627

PATIENT
  Sex: Female

DRUGS (7)
  1. VICODIN [Concomitant]
  2. LISINOPRIL [Concomitant]
  3. TYSABRI [Suspect]
     Indication: MULTIPLE SCLEROSIS
     Route: 042
     Dates: start: 20100915
  4. RELAFEN [Concomitant]
     Route: 048
  5. XANAX [Concomitant]
  6. PAXIL [Concomitant]
     Route: 048
  7. CYMBALTA [Concomitant]
     Route: 048

REACTIONS (7)
  - HEMIPARESIS [None]
  - CENTRAL NERVOUS SYSTEM LESION [None]
  - MULTIPLE SCLEROSIS [None]
  - NUCLEAR MAGNETIC RESONANCE IMAGING ABNORMAL [None]
  - MUSCULAR WEAKNESS [None]
  - OPTIC NEURITIS [None]
  - MULTIPLE SCLEROSIS RELAPSE [None]
